FAERS Safety Report 19363414 (Version 9)
Quarter: 2022Q2

REPORT INFORMATION
  Report Type: Report from Study
  Country: ES (occurrence: None)
  Receive Date: 20210602
  Receipt Date: 20220428
  Transmission Date: 20220721
  Serious: Yes (Death, Hospitalization)
  Sender: FDA-Public Use
  Company Number: ES-ROCHE-2839524

PATIENT
  Age: 76 Year
  Sex: Male
  Weight: 52.5 kg

DRUGS (14)
  1. PLACEBO [Suspect]
     Active Substance: UNSPECIFIED INGREDIENT
     Indication: Non-small cell lung cancer
     Dosage: MOST RECENT DOSE RECEIVED ON 30/APR/2021 PRIOR TO SERIOUS ADVERSE EVENT.
     Route: 042
     Dates: start: 20210409
  2. ATEZOLIZUMAB [Suspect]
     Active Substance: ATEZOLIZUMAB
     Indication: Non-small cell lung cancer
     Dosage: MOST RECENT DOSE (1200 MG) RECEIVED ON 30/APR/2021 PRIOR TO SERIOUS ADVERSE EVENT.
     Route: 042
     Dates: start: 20210409
  3. METFORMIN\SITAGLIPTIN [Concomitant]
     Active Substance: METFORMIN\SITAGLIPTIN
     Indication: Type 2 diabetes mellitus
     Dosage: 1 TABLET
     Route: 048
  4. ATORVASTATIN [Concomitant]
     Active Substance: ATORVASTATIN
     Indication: Dyslipidaemia
     Route: 048
  5. CHOLESTYRAMINE [Concomitant]
     Active Substance: CHOLESTYRAMINE
     Indication: Dyslipidaemia
     Route: 048
  6. APIXABAN [Concomitant]
     Active Substance: APIXABAN
     Indication: Atrial fibrillation
     Route: 048
  7. PENTOXIFYLLINE [Concomitant]
     Active Substance: PENTOXIFYLLINE
     Indication: Peripheral arterial occlusive disease
     Route: 048
  8. FERROUS SULFATE [Concomitant]
     Active Substance: FERROUS SULFATE
     Indication: Anaemia
     Route: 048
  9. FOLIC ACID [Concomitant]
     Active Substance: FOLIC ACID
     Indication: Anaemia
     Route: 048
  10. OMEPRAZOLE [Concomitant]
     Active Substance: OMEPRAZOLE
     Indication: Gastrointestinal disorder prophylaxis
     Route: 048
  11. ESCOPOLAMINA [Concomitant]
     Indication: Diarrhoea
     Route: 048
     Dates: start: 20210325
  12. SALVACOLINA [Concomitant]
     Indication: Diarrhoea
     Route: 048
     Dates: start: 20210325
  13. INSULINA GLARGINA [Concomitant]
     Indication: Type 2 diabetes mellitus
     Dosage: 16 IU
     Route: 058
  14. OCTREOTIDE [Concomitant]
     Active Substance: OCTREOTIDE
     Indication: Diarrhoea
     Route: 030
     Dates: start: 20210409

REACTIONS (1)
  - Cardiac failure [Fatal]

NARRATIVE: CASE EVENT DATE: 20210521
